FAERS Safety Report 9100587 (Version 1)
Quarter: 2013Q1

REPORT INFORMATION
  Report Type: Spontaneous
  Country: US (occurrence: US)
  Receive Date: 20130215
  Receipt Date: 20130215
  Transmission Date: 20140127
  Serious: Yes (Other)
  Sender: FDA-Public Use
  Company Number: PHEH2013US003538

PATIENT
  Sex: Male

DRUGS (6)
  1. DIOVAN [Suspect]
     Indication: HYPERTENSION
  2. TAMSULOSIN [Concomitant]
  3. METOPROLOL [Concomitant]
  4. ATORVASTATIN [Concomitant]
  5. LATANOPROST [Concomitant]
  6. ASPIRIN [Concomitant]

REACTIONS (1)
  - Transient ischaemic attack [Unknown]
